FAERS Safety Report 9730328 (Version 4)
Quarter: 2014Q1

REPORT INFORMATION
  Report Type: Report from Study
  Country: FR (occurrence: FR)
  Receive Date: 20131204
  Receipt Date: 20140213
  Transmission Date: 20141002
  Serious: Yes (Disabling, Other)
  Sender: FDA-Public Use
  Company Number: FR-ROCHE-1307645

PATIENT
  Age: 75 Year
  Sex: Male
  Weight: 60 kg

DRUGS (1)
  1. VISMODEGIB [Suspect]
     Indication: BASAL CELL CARCINOMA
     Dosage: LAST DOSE PRIOR TO SAE: 21/OCT/2013.
     Route: 048
     Dates: start: 20130830, end: 20131024

REACTIONS (2)
  - Hepatocellular injury [Recovered/Resolved with Sequelae]
  - Thymoma [Not Recovered/Not Resolved]
